FAERS Safety Report 5215764-7 (Version None)
Quarter: 2007Q1

REPORT INFORMATION
  Report Type: 
  Country: None (occurrence: None)
  Receive Date: 20070123
  Receipt Date: 20070112
  Transmission Date: 20070707
  Serious: Yes (Other)
  Sender: FDA-Public Use
  Company Number: US-ROCHE-473983

PATIENT
  Age: 64 Year
  Sex: Female

DRUGS (2)
  1. BONIVA [Suspect]
     Indication: DRUG USE FOR UNKNOWN INDICATION
     Dosage: THE PATIENT RECEIVED SECOND DOSE OF IBANDRONIC ACID ON 11 OCTOBER 2006 AND THIRD DOSE ON 11 NOVEMBE+
     Route: 065
     Dates: start: 20060911
  2. FLU SHOT [Concomitant]
     Dates: start: 20061013, end: 20061013

REACTIONS (1)
  - POLYMYALGIA RHEUMATICA [None]
